FAERS Safety Report 25485783 (Version 1)
Quarter: 2025Q2

REPORT INFORMATION
  Report Type: Spontaneous
  Country: US (occurrence: US)
  Receive Date: 20250626
  Receipt Date: 20250626
  Transmission Date: 20250717
  Serious: No
  Sender: GALDERMA
  Company Number: US-GALDERMA-US2025005317

PATIENT

DRUGS (1)
  1. NEMLUVIO [Suspect]
     Active Substance: NEMOLIZUMAB-ILTO
     Indication: Dermatitis atopic
     Route: 058
     Dates: start: 20250318, end: 20250318

REACTIONS (2)
  - Rash [Not Recovered/Not Resolved]
  - Swelling face [Not Recovered/Not Resolved]

NARRATIVE: CASE EVENT DATE: 20250401
